FAERS Safety Report 25825521 (Version 1)
Quarter: 2025Q3

REPORT INFORMATION
  Report Type: Spontaneous
  Country: US (occurrence: None)
  Receive Date: 20250919
  Receipt Date: 20250919
  Transmission Date: 20251020
  Serious: Yes (Hospitalization)
  Sender: FDA-CTU
  Company Number: None

PATIENT
  Sex: Female

DRUGS (3)
  1. KEVZARA [Suspect]
     Active Substance: SARILUMAB
  2. HEPARIN [Suspect]
     Active Substance: HEPARIN SODIUM
  3. ARIXTRA [Concomitant]
     Active Substance: FONDAPARINUX SODIUM

REACTIONS (6)
  - Injection site erythema [None]
  - Injection site pruritus [None]
  - Supraventricular tachycardia [None]
  - Pulmonary embolism [None]
  - Drug hypersensitivity [None]
  - Heparin-induced thrombocytopenia [None]

NARRATIVE: CASE EVENT DATE: 20250701
